FAERS Safety Report 8557659-7 (Version None)
Quarter: 2012Q3

REPORT INFORMATION
  Report Type: 
  Country: None (occurrence: None)
  Receive Date: 20120801
  Receipt Date: 20120718
  Transmission Date: 20120928
  Serious: Yes (Hospitalization)
  Sender: FDA-Public Use
  Company Number: GB-ELI_LILLY_AND_COMPANY-GB201207005293

PATIENT
  Age: 27 Year
  Sex: Male

DRUGS (2)
  1. ZYPREXA [Suspect]
     Dosage: 20 MG, UNKNOWN
     Route: 048
  2. OLANZAPINE [Suspect]
     Dosage: 300 MG, 2/M

REACTIONS (8)
  - CONFUSIONAL STATE [None]
  - PSYCHOTIC DISORDER [None]
  - PARANOIA [None]
  - AGGRESSION [None]
  - TREATMENT NONCOMPLIANCE [None]
  - POLYDIPSIA [None]
  - LOWER LIMB FRACTURE [None]
  - ABNORMAL BEHAVIOUR [None]
